FAERS Safety Report 15978012 (Version 2)
Quarter: 2019Q4

REPORT INFORMATION
  Report Type: Spontaneous
  Country: US (occurrence: US)
  Receive Date: 20190218
  Receipt Date: 20191029
  Transmission Date: 20200122
  Serious: Yes (Other)
  Sender: FDA-Public Use
  Company Number: US-SA-2018SA000683

PATIENT
  Age: 72 Year
  Sex: Female
  Weight: 63.5 kg

DRUGS (8)
  1. TAXOTERE [Suspect]
     Active Substance: DOCETAXEL
     Indication: BREAST CANCER FEMALE
     Dosage: 120 MG, Q3W
     Route: 042
     Dates: start: 20060228, end: 20060228
  2. TAXOTERE [Suspect]
     Active Substance: DOCETAXEL
     Dosage: 120 MG, Q3W
     Route: 042
     Dates: start: 20060502, end: 20060502
  3. NEOSAR [Concomitant]
     Active Substance: CYCLOPHOSPHAMIDE
     Indication: BREAST CANCER FEMALE
  4. SIMVASTIN [Concomitant]
     Active Substance: SIMVASTATIN
     Dosage: 20 ML
     Dates: start: 1999, end: 2019
  5. ACTONEL [Concomitant]
     Active Substance: RISEDRONATE SODIUM
  6. ATENOL [Concomitant]
     Active Substance: ATENOLOL
     Dosage: UNK
     Dates: start: 1999, end: 2019
  7. CYTOXAN [Concomitant]
     Active Substance: CYCLOPHOSPHAMIDE
     Indication: BREAST CANCER FEMALE
  8. ZOCOL [Concomitant]
     Active Substance: FLUCONAZOLE

REACTIONS (5)
  - Emotional distress [Unknown]
  - Impaired quality of life [Unknown]
  - Anxiety [Unknown]
  - Pain [Unknown]
  - Alopecia [Recovering/Resolving]

NARRATIVE: CASE EVENT DATE: 200611
